FAERS Safety Report 4370080-0 (Version None)
Quarter: 2004Q2

REPORT INFORMATION
  Report Type: 
  Country: None (occurrence: None)
  Receive Date: 20040526
  Receipt Date: 20040204
  Transmission Date: 20050107
  Serious: Yes (Other)
  Sender: FDA-Public Use
  Company Number: SUS1-2003-00076

PATIENT
  Age: 69 Year

DRUGS (8)
  1. AGRYLIN (ANAGRELIDE  HYDROCHLORIDE) CAPSULE [Suspect]
     Indication: ESSENTIAL THROMBOCYTHAEMIA
     Dosage: SEE IMAGE
     Route: 048
     Dates: start: 20040122, end: 20040129
  2. AGRYLIN (ANAGRELIDE  HYDROCHLORIDE) CAPSULE [Suspect]
     Indication: ESSENTIAL THROMBOCYTHAEMIA
     Dosage: SEE IMAGE
     Route: 048
     Dates: start: 20040129, end: 20040204
  3. AGRYLIN (ANAGRELIDE  HYDROCHLORIDE) CAPSULE [Suspect]
     Indication: ESSENTIAL THROMBOCYTHAEMIA
     Dosage: SEE IMAGE
     Route: 048
     Dates: start: 20040210, end: 20040226
  4. AGRYLIN (ANAGRELIDE  HYDROCHLORIDE) CAPSULE [Suspect]
     Indication: ESSENTIAL THROMBOCYTHAEMIA
     Dosage: SEE IMAGE
     Route: 048
     Dates: start: 20040301
  5. ASPIRIN [Concomitant]
  6. VIOXX [Concomitant]
  7. ROFECOXIB [Concomitant]
  8. AMITRIPTYLINE HCL [Concomitant]

REACTIONS (4)
  - ABDOMINAL DISTENSION [None]
  - HEADACHE [None]
  - INSOMNIA [None]
  - IVTH NERVE PARALYSIS [None]
